FAERS Safety Report 20250321 (Version 1)
Quarter: 2021Q4

REPORT INFORMATION
  Report Type: Spontaneous
  Country: DE (occurrence: DE)
  Receive Date: 20211229
  Receipt Date: 20211229
  Transmission Date: 20220303
  Serious: Yes (Life-Threatening, Hospitalization)
  Sender: FDA-Public Use
  Company Number: DE-ADRED-07591-01

PATIENT
  Age: 89 Year
  Sex: Female
  Weight: 65 kg

DRUGS (7)
  1. FUROSEMIDE [Suspect]
     Active Substance: FUROSEMIDE
     Dosage: 20 MILLIGRAM DAILY; 1-0-0-0
     Route: 048
  2. VALSARTAN [Suspect]
     Active Substance: VALSARTAN
     Dosage: 160 MILLIGRAM DAILY; 1-0-0-0
     Route: 048
  3. APIXABAN [Suspect]
     Active Substance: APIXABAN
     Dosage: 5 MILLIGRAM DAILY; 1-0-1-0
     Route: 048
  4. ALBUTEROL [Concomitant]
     Active Substance: ALBUTEROL
     Dosage: REQUIREMENT
  5. METAMIZOL [Concomitant]
     Active Substance: METAMIZOLE SODIUM
     Dosage: REQUIREMENT
  6. FLUTICASONE PROPIONATE\SALMETEROL XINAFOATE [Concomitant]
     Active Substance: FLUTICASONE PROPIONATE\SALMETEROL XINAFOATE
     Dosage: 1 DOSAGE FORMS DAILY; 500|50 MCG, 1-0-0-0, VIANI FORTE 50 MCG / 500 MCG DISC
     Route: 055
  7. BUDESONIDE [Concomitant]
     Active Substance: BUDESONIDE
     Dosage: .4 MILLIGRAM DAILY; 1-0-1-0, EASYHALER BUDESONIDE 0.2MG / DOSE
     Route: 055

REACTIONS (6)
  - Haematoma [Unknown]
  - Fracture [Unknown]
  - Memory impairment [Unknown]
  - Headache [Unknown]
  - Depressed level of consciousness [Unknown]
  - Fall [Unknown]
